FAERS Safety Report 7995919-9 (Version None)
Quarter: 2011Q4

REPORT INFORMATION
  Report Type: 
  Country: None (occurrence: None)
  Receive Date: 20111220
  Receipt Date: 20111212
  Transmission Date: 20120403
  Serious: Yes (Other)
  Sender: FDA-Public Use
  Company Number: CHPA2011US017868

PATIENT
  Age: 70 Year
  Sex: Female

DRUGS (3)
  1. EXCEDRIN (MIGRAINE) [Suspect]
     Dosage: UNK DF, UNK
     Route: 048
  2. EXCEDRIN (MIGRAINE) [Suspect]
     Indication: SINUS HEADACHE
     Dosage: 1-2 TABLETS, PRN
     Route: 048
  3. EXCEDRIN (MIGRAINE) [Suspect]
     Dosage: UNK DF, UNK
     Route: 048

REACTIONS (4)
  - LOWER LIMB FRACTURE [None]
  - ARTHRITIS [None]
  - PAIN IN EXTREMITY [None]
  - UNDERDOSE [None]
